FAERS Safety Report 15301114 (Version 1)
Quarter: 2018Q3

REPORT INFORMATION
  Report Type: Spontaneous
  Country: US (occurrence: US)
  Receive Date: 20180809
  Receipt Date: 20180809
  Transmission Date: 20181010
  Serious: Yes (Disabling)
  Sender: FDA-Public Use
  Company Number: None

PATIENT
  Age: 21 Year
  Sex: Female
  Weight: 55.35 kg

DRUGS (3)
  1. PROBIOTICS [Concomitant]
     Active Substance: PROBIOTICS NOS
  2. MIRALAX [Suspect]
     Active Substance: POLYETHYLENE GLYCOL 3350
     Indication: CONSTIPATION
     Dosage: ?          QUANTITY:14 14 CAPFUL 1X WEEK;OTHER FREQUENCY:1X WEEK;?
     Route: 048
     Dates: start: 20080801, end: 20130116
  3. DIGESTIVE ENZYMES [Concomitant]
     Active Substance: UNSPECIFIED INGREDIENT

REACTIONS (26)
  - Pain in extremity [None]
  - Rash macular [None]
  - Cognitive disorder [None]
  - Paraesthesia [None]
  - Food intolerance [None]
  - Gastric pH increased [None]
  - Dyspepsia [None]
  - Weight decreased [None]
  - Quality of life decreased [None]
  - Mental disorder [None]
  - Neuropathy peripheral [None]
  - Malabsorption [None]
  - Fatigue [None]
  - Disturbance in attention [None]
  - Obsessive-compulsive disorder [None]
  - Social problem [None]
  - Rash [None]
  - Stool analysis abnormal [None]
  - Abdominal pain [None]
  - Anger [None]
  - Erythema [None]
  - Anxiety [None]
  - Educational problem [None]
  - Emotional disorder [None]
  - Urticaria [None]
  - Depression [None]

NARRATIVE: CASE EVENT DATE: 20080801
